FAERS Safety Report 25329760 (Version 1)
Quarter: 2025Q2

REPORT INFORMATION
  Report Type: Report from Study
  Country: US (occurrence: US)
  Receive Date: 20250519
  Receipt Date: 20250519
  Transmission Date: 20250717
  Serious: Yes (Other)
  Sender: ALEXION PHARMACEUTICALS
  Company Number: US-AstraZeneca-CH-00871175A

PATIENT
  Age: 76 Year

DRUGS (2)
  1. TEZEPELUMAB [Suspect]
     Active Substance: TEZEPELUMAB
     Route: 065
  2. TEZEPELUMAB [Suspect]
     Active Substance: TEZEPELUMAB

REACTIONS (6)
  - Neuropathy peripheral [Unknown]
  - Dyspnoea exertional [Unknown]
  - Productive cough [Unknown]
  - Blood pressure systolic increased [Unknown]
  - Fatigue [Unknown]
  - Arthralgia [Unknown]
